FAERS Safety Report 6479493-4 (Version None)
Quarter: 2009Q4

REPORT INFORMATION
  Report Type: 
  Country: None (occurrence: None)
  Receive Date: 20091207
  Receipt Date: 20091207
  Transmission Date: 20100525
  Serious: No
  Sender: FDA-Public Use
  Company Number: None

PATIENT
  Sex: Female
  Weight: 62.8685 kg

DRUGS (1)
  1. MIXED SALTS AMPHETAMINE 30MG, 24HR [Suspect]
     Indication: ATTENTION DEFICIT/HYPERACTIVITY DISORDER
     Dosage: 1 (ONE) ONCE (AM) ORAL
     Route: 048
     Dates: start: 20090622, end: 20091116

REACTIONS (4)
  - EDUCATIONAL PROBLEM [None]
  - INSOMNIA [None]
  - THERAPEUTIC RESPONSE UNEXPECTED [None]
  - THINKING ABNORMAL [None]
